FAERS Safety Report 5730697-5 (Version None)
Quarter: 2008Q2

REPORT INFORMATION
  Report Type: 
  Country: None (occurrence: None)
  Receive Date: 20080507
  Receipt Date: 20080429
  Transmission Date: 20081010
  Serious: Yes (Other)
  Sender: FDA-Public Use
  Company Number: US-PFIZER INC-2008000442

PATIENT
  Sex: Female
  Weight: 65.8 kg

DRUGS (4)
  1. CHANTIX [Suspect]
     Dates: start: 20071124, end: 20080330
  2. MORPHINE SULFATE [Concomitant]
     Indication: SMOKING CESSATION THERAPY
  3. CYMBALTA [Concomitant]
  4. NEURONTIN [Concomitant]

REACTIONS (6)
  - CATARACT [None]
  - NAUSEA [None]
  - NIGHT BLINDNESS [None]
  - VISION BLURRED [None]
  - VISUAL DISTURBANCE [None]
  - WEIGHT INCREASED [None]
